FAERS Safety Report 10580185 (Version 2)
Quarter: 2014Q4

REPORT INFORMATION
  Report Type: Spontaneous
  Country: US (occurrence: US)
  Receive Date: 20141112
  Receipt Date: 20141125
  Transmission Date: 20150529
  Serious: Yes (Other)
  Sender: FDA-Public Use
  Company Number: US-TEVA-522303USA

PATIENT
  Age: 25 Year
  Sex: Female
  Weight: 99.88 kg

DRUGS (1)
  1. TAKE ACTION [Suspect]
     Active Substance: LEVONORGESTREL
     Indication: POST COITAL CONTRACEPTION
     Dosage: 1.5 MILLIGRAM DAILY;
     Route: 048
     Dates: start: 20141001, end: 20141001

REACTIONS (3)
  - Menstruation delayed [Not Recovered/Not Resolved]
  - Drug ineffective [Unknown]
  - Pregnancy after post coital contraception [Not Recovered/Not Resolved]

NARRATIVE: CASE EVENT DATE: 201410
